FAERS Safety Report 12048401 (Version 1)
Quarter: 2016Q1

REPORT INFORMATION
  Report Type: Spontaneous
  Country: FR (occurrence: FR)
  Receive Date: 20160208
  Receipt Date: 20160208
  Transmission Date: 20160526
  Serious: Yes (Death, Hospitalization)
  Sender: FDA-Public Use
  Company Number: FR-SA-2016SA020851

PATIENT
  Age: 95 Year
  Sex: Female
  Weight: 53.3 kg

DRUGS (11)
  1. CORDARONE [Concomitant]
     Active Substance: AMIODARONE HYDROCHLORIDE
     Dosage: STRENGTH: 200MG
     Route: 048
  2. LASILIX [Suspect]
     Active Substance: FUROSEMIDE
     Indication: ANURIA
     Route: 048
     Dates: start: 20151102, end: 20151118
  3. EXELON [Concomitant]
     Active Substance: RIVASTIGMINE TARTRATE
     Dosage: STRENGTH: 4.6MG?PATCH
     Route: 062
  4. MIANSERINE [Concomitant]
     Active Substance: MIANSERIN HYDROCHLORIDE
     Dosage: STRENGTH:10 MG
     Route: 048
  5. MONTELUKAST [Concomitant]
     Active Substance: MONTELUKAST SODIUM
     Dosage: STRENGTH: 10MG
     Route: 048
  6. AMLOR [Concomitant]
     Active Substance: AMLODIPINE BESYLATE
     Dosage: STRENGTH: 5MG
     Route: 048
  7. VENTOLINE [Concomitant]
     Active Substance: ALBUTEROL
     Dosage: FREQUENCY:IF NECESSARY
     Route: 055
  8. LASILIX [Suspect]
     Active Substance: FUROSEMIDE
     Indication: CARDIAC FAILURE
     Route: 048
     Dates: start: 20151102, end: 20151118
  9. LEVOTHYROX [Concomitant]
     Active Substance: LEVOTHYROXINE
     Dosage: STRENGTH: 50MCG
     Route: 048
  10. KARDEGIC [Concomitant]
     Active Substance: ASPIRIN LYSINE
     Dosage: STRENGTH: 75MG
     Route: 048
  11. SERETIDE [Concomitant]
     Active Substance: FLUTICASONE FUROATE\SALMETEROL XINAFOATE
     Dosage: STRENGTH: 250MG/25MG
     Route: 048

REACTIONS (2)
  - Acute kidney injury [Fatal]
  - Dehydration [Fatal]

NARRATIVE: CASE EVENT DATE: 20151103
